FAERS Safety Report 12094437 (Version 4)
Quarter: 2016Q2

REPORT INFORMATION
  Report Type: Other
  Country: IT (occurrence: IT)
  Receive Date: 20160219
  Receipt Date: 20160513
  Transmission Date: 20160815
  Serious: Yes (Life-Threatening, Hospitalization, Other)
  Sender: FDA-Public Use
  Company Number: IT-APOPHARMA USA, INC.-2016AP006512

PATIENT
  Age: 17 Year
  Sex: Male

DRUGS (2)
  1. DESFERAL [Concomitant]
     Active Substance: DEFEROXAMINE MESYLATE
     Indication: HAEMOCHROMATOSIS
     Dosage: 1 G, QD
     Route: 058
  2. FERRIPROX [Suspect]
     Active Substance: DEFERIPRONE
     Indication: HAEMOCHROMATOSIS
     Dosage: 3 G, QD
     Route: 048
     Dates: start: 20131213, end: 20151118

REACTIONS (3)
  - Histiocytosis haematophagic [Recovering/Resolving]
  - Sepsis [Recovered/Resolved]
  - Agranulocytosis [Recovered/Resolved]

NARRATIVE: CASE EVENT DATE: 20151118
